FAERS Safety Report 11308740 (Version 1)
Quarter: 2015Q3

REPORT INFORMATION
  Report Type: Spontaneous
  Country: US (occurrence: US)
  Receive Date: 20150724
  Receipt Date: 20150724
  Transmission Date: 20151125
  Serious: Yes (Death, Other)
  Sender: FDA-Public Use
  Company Number: US-JNJFOC-20150715218

PATIENT
  Sex: Male

DRUGS (1)
  1. TYLENOL WITH CODEINE [Suspect]
     Active Substance: ACETAMINOPHEN\CODEINE PHOSPHATE
     Indication: INFECTION
     Route: 065

REACTIONS (4)
  - Organ failure [Fatal]
  - Extra dose administered [Fatal]
  - Product use issue [Unknown]
  - Liver injury [Fatal]
